FAERS Safety Report 24001793 (Version 1)
Quarter: 2024Q2

REPORT INFORMATION
  Report Type: Other
  Country: AT (occurrence: AT)
  Receive Date: 20240622
  Receipt Date: 20240622
  Transmission Date: 20240716
  Serious: Yes (Life-Threatening, Hospitalization, Other)
  Sender: FDA-Public Use
  Company Number: AT-ACI HealthCare Limited-2158421

PATIENT
  Age: 18 Year
  Sex: Male

DRUGS (6)
  1. AZITHROMYCIN [Suspect]
     Active Substance: AZITHROMYCIN
     Indication: Myocarditis
     Route: 065
  2. LEVOSIMENDAN [Concomitant]
     Active Substance: LEVOSIMENDAN
     Route: 065
  3. PIPERACILLIN AND TAZOBACTAM [Concomitant]
     Active Substance: PIPERACILLIN SODIUM\TAZOBACTAM SODIUM
     Route: 065
  4. DAPTOMYCIN [Concomitant]
     Active Substance: DAPTOMYCIN
     Route: 065
  5. NOREPINEPHRINE [Concomitant]
     Active Substance: NOREPINEPHRINE\NOREPINEPHRINE BITARTRATE
     Route: 065
  6. DOBUTAMINE [Concomitant]
     Active Substance: DOBUTAMINE HYDROCHLORIDE
     Route: 065

REACTIONS (5)
  - Cardiogenic shock [Recovered/Resolved]
  - Product use in unapproved indication [Unknown]
  - Hypotension [Recovered/Resolved]
  - Haemodynamic instability [Recovered/Resolved]
  - Pulmonary oedema [Recovered/Resolved]

NARRATIVE: CASE EVENT DATE: 20230908
